FAERS Safety Report 4871642-4 (Version None)
Quarter: 2006Q1

REPORT INFORMATION
  Report Type: 
  Country: None (occurrence: None)
  Receive Date: 20060104
  Receipt Date: 20051223
  Transmission Date: 20060701
  Serious: Yes (Hospitalization)
  Sender: FDA-Public Use
  Company Number: PHBS2005IT19051

PATIENT
  Age: 68 Year
  Sex: Male

DRUGS (2)
  1. INTRON A [Concomitant]
     Dosage: 3 MIU, UNK
     Dates: start: 20030721, end: 20050922
  2. ZOMETA [Suspect]
     Indication: MULTIPLE MYELOMA
     Dosage: 4 MG, UNK
     Dates: start: 20021011, end: 20050524

REACTIONS (2)
  - HYPERBARIC OXYGEN THERAPY [None]
  - OSTEONECROSIS [None]
